FAERS Safety Report 6787474-6 (Version None)
Quarter: 2010Q2

REPORT INFORMATION
  Report Type: 
  Country: None (occurrence: None)
  Receive Date: 20100623
  Receipt Date: 20100609
  Transmission Date: 20101027
  Serious: Yes (Other)
  Sender: FDA-Public Use
  Company Number: JP-BAUSCH-2010BL002010

PATIENT
  Age: 44 Year
  Sex: Female

DRUGS (18)
  1. FLUOCINOLONE ACETONIDE [Suspect]
     Route: 047
     Dates: start: 20061201
  2. FLUOCINOLONE ACETONIDE [Suspect]
     Route: 047
     Dates: start: 20030221
  3. FLUOCINOLONE ACETONIDE [Concomitant]
     Indication: UVEITIS
     Route: 047
     Dates: start: 20060818
  4. PREDONINE [Concomitant]
     Route: 048
  5. COLCHICINE [Concomitant]
     Route: 048
  6. BUFFERIN [Concomitant]
     Route: 048
  7. CINAL [Concomitant]
     Route: 048
  8. ALFACALCIDOL [Concomitant]
     Route: 048
  9. LIPITOR [Concomitant]
     Route: 048
  10. TARIVID /SCH/ [Concomitant]
     Route: 047
     Dates: start: 20090419
  11. ASPIRIN [Concomitant]
     Route: 048
  12. CARNACULIN [Concomitant]
     Route: 048
  13. TAKEPRON [Concomitant]
     Route: 048
     Dates: start: 20070730
  14. CYANOCOBALAMIN [Concomitant]
     Route: 048
  15. ALENDRONATE SODIUM [Concomitant]
     Route: 048
     Dates: start: 20070817
  16. TRAVATAN [Concomitant]
     Route: 047
  17. HYALEIN [Concomitant]
     Route: 047
     Dates: start: 20090205
  18. HYALEIN [Concomitant]
     Route: 047
     Dates: start: 20090205

REACTIONS (5)
  - BEHCET'S SYNDROME [None]
  - CONDITION AGGRAVATED [None]
  - INTRAOCULAR PRESSURE INCREASED [None]
  - LYMPHOMA [None]
  - MENINGITIS [None]
